FAERS Safety Report 7639017-2 (Version None)
Quarter: 2011Q3

REPORT INFORMATION
  Report Type: 
  Country: None (occurrence: None)
  Receive Date: 20110727
  Receipt Date: 20110725
  Transmission Date: 20111222
  Serious: Yes (Other)
  Sender: FDA-Public Use
  Company Number: US-PFIZER INC-2011168813

PATIENT
  Sex: Male
  Weight: 90.703 kg

DRUGS (3)
  1. COREG [Concomitant]
     Dosage: UNK
  2. PRADAXA [Concomitant]
     Dosage: UNK
  3. CORDARONE [Suspect]
     Indication: ATRIAL FIBRILLATION
     Dosage: 200 MG, 1X/DAY
     Route: 048
     Dates: start: 20110601, end: 20110722

REACTIONS (1)
  - PAPILLOEDEMA [None]
